FAERS Safety Report 4808382-3 (Version None)
Quarter: 2005Q4

REPORT INFORMATION
  Report Type: 
  Country: None (occurrence: None)
  Receive Date: 20051021
  Receipt Date: 20020418
  Transmission Date: 20060501
  Serious: No
  Sender: FDA-Public Use
  Company Number: EWC020430749

PATIENT
  Age: 45 Year
  Sex: Male

DRUGS (3)
  1. ZYPREXA [Suspect]
     Indication: BIPOLAR DISORDER
     Dosage: 10 MG
     Dates: start: 20010401
  2. DEPAKENE [Concomitant]
  3. MANIPREX (LITHIUM CARBONATE) [Concomitant]

REACTIONS (5)
  - CATARACT [None]
  - EOSINOPHILIA [None]
  - RETINITIS PIGMENTOSA [None]
  - SEDATION [None]
  - VISUAL FIELD DEFECT [None]
